FAERS Safety Report 10542033 (Version 1)
Quarter: 2014Q4

REPORT INFORMATION
  Report Type: Spontaneous
  Country: US (occurrence: US)
  Receive Date: 20141024
  Receipt Date: 20141024
  Transmission Date: 20150529
  Serious: Yes (Other)
  Sender: FDA-Public Use
  Company Number: US-MYLANLABS-2014SP001467

PATIENT
  Sex: Female

DRUGS (1)
  1. DEXAMETHASONE. [Suspect]
     Active Substance: DEXAMETHASONE
     Indication: LICHEN SCLEROSUS

REACTIONS (7)
  - Productive cough [Recovered/Resolved]
  - Fatigue [Unknown]
  - Throat tightness [Unknown]
  - Dysphagia [Unknown]
  - Speech disorder [Unknown]
  - Dyspnoea [Unknown]
  - Feeding disorder [Unknown]
